FAERS Safety Report 12613322 (Version 2)
Quarter: 2016Q4

REPORT INFORMATION
  Report Type: Report from Study
  Country: CN (occurrence: CN)
  Receive Date: 20160802
  Receipt Date: 20161006
  Transmission Date: 20170207
  Serious: Yes (Death)
  Sender: FDA-Public Use
  Company Number: CN-ROCHE-1806943

PATIENT

DRUGS (1)
  1. ALTEPLASE [Suspect]
     Active Substance: ALTEPLASE
     Indication: ISCHAEMIC STROKE
     Dosage: DOSE: 0.9MG/KG PER BODY WEIGHT (10% DOSAGE) CONTINUOUSLY PUMPING FOR 60 MIN (90% DOSAGE)
     Route: 042

REACTIONS (1)
  - Death [Fatal]
